FAERS Safety Report 6057859-4 (Version None)
Quarter: 2009Q1

REPORT INFORMATION
  Report Type: 
  Country: None (occurrence: None)
  Receive Date: 20090129
  Receipt Date: 20090115
  Transmission Date: 20090719
  Serious: Yes (Other)
  Sender: FDA-Public Use
  Company Number: AU-WYE-G02848008

PATIENT
  Sex: Male

DRUGS (5)
  1. PRISTIQ [Suspect]
     Indication: DEPRESSION
     Route: 048
     Dates: start: 20081101
  2. PRISTIQ [Suspect]
     Indication: NEUROTRANSMITTER LEVEL ALTERED
     Dosage: ^50MG MORNING AND NIGHT^
     Route: 048
  3. PRISTIQ [Suspect]
     Route: 048
     Dates: end: 20090101
  4. VALIUM [Concomitant]
     Indication: MUSCLE SPASMS
     Dosage: TWICE A DAY, ON AND OFF
  5. MERSYNDOL [Concomitant]
     Indication: MUSCLE SPASMS

REACTIONS (5)
  - DRUG INEFFECTIVE [None]
  - HEADACHE [None]
  - SLEEP DISORDER [None]
  - SUICIDAL IDEATION [None]
  - WEIGHT INCREASED [None]
